FAERS Safety Report 6457140-5 (Version None)
Quarter: 2009Q4

REPORT INFORMATION
  Report Type: 
  Country: None (occurrence: None)
  Receive Date: 20091125
  Receipt Date: 20091119
  Transmission Date: 20100525
  Serious: Yes (Death)
  Sender: FDA-Public Use
  Company Number: B0606739A

PATIENT
  Age: 52 Year
  Sex: Female

DRUGS (2)
  1. ALBENDAZOLE [Suspect]
     Route: 065
  2. DIETHYLCARBAMAZINE CITRATE [Suspect]
     Route: 065

REACTIONS (1)
  - CARDIAC ARREST [None]
